FAERS Safety Report 4639224-7 (Version None)
Quarter: 2005Q2

REPORT INFORMATION
  Report Type: 
  Country: None (occurrence: None)
  Receive Date: 20050419
  Receipt Date: 20050408
  Transmission Date: 20051028
  Serious: Yes (Other)
  Sender: FDA-Public Use
  Company Number: FR-BRISTOL-MYERS SQUIBB COMPANY-12927307

PATIENT
  Age: 55 Year
  Sex: Male

DRUGS (2)
  1. VASTEN TABS 10 MG [Suspect]
     Indication: HYPERCHOLESTEROLAEMIA
     Dosage: 10MG EVERY 2 DAYS FOR YEARS; INCREASED TO 10MG/DAY IN FEB-2005.
     Route: 048
     Dates: end: 20050321
  2. PROPRANOLOL HYDROCHLORIDE [Concomitant]
     Indication: MIGRAINE
     Route: 048

REACTIONS (1)
  - MUSCLE INJURY [None]
